FAERS Safety Report 10045994 (Version 1)
Quarter: 2014Q1

REPORT INFORMATION
  Report Type: Spontaneous
  Country: US (occurrence: US)
  Receive Date: 20140330
  Receipt Date: 20140330
  Transmission Date: 20141002
  Serious: No
  Sender: FDA-Public Use
  Company Number: US-009507513-1403USA011755

PATIENT
  Sex: 0

DRUGS (2)
  1. EMEND [Suspect]
     Route: 042
  2. EPIRUBICIN HYDROCHLORIDE [Concomitant]

REACTIONS (3)
  - Dyspnoea [Unknown]
  - Anaphylactic reaction [Unknown]
  - Flushing [Unknown]
